FAERS Safety Report 16417592 (Version 3)
Quarter: 2020Q2

REPORT INFORMATION
  Report Type: Spontaneous
  Country: US (occurrence: US)
  Receive Date: 20190611
  Receipt Date: 20200422
  Transmission Date: 20200713
  Serious: Yes (Other)
  Sender: FDA-Public Use
  Company Number: US-GILEAD-2019-0412868

PATIENT
  Age: 41 Year
  Sex: Male

DRUGS (12)
  1. ISENTRESS [Concomitant]
     Active Substance: RALTEGRAVIR POTASSIUM
  2. COMPLERA [Suspect]
     Active Substance: EMTRICITABINE\RILPIVIRINE HYDROCHLORIDE\TENOFOVIR DISOPROXIL FUMARATE
     Indication: HIV INFECTION
     Dosage: 1 DOSAGE FORM, QD
     Route: 048
     Dates: start: 201212, end: 201601
  3. PREZISTA [Concomitant]
     Active Substance: DARUNAVIR ETHANOLATE
  4. KENALOG [Concomitant]
     Active Substance: TRIAMCINOLONE ACETONIDE
  5. HEPATITIS B VACCINE [Concomitant]
     Active Substance: HEPATITIS B VIRUS VACCINE
  6. TRUVADA [Suspect]
     Active Substance: EMTRICITABINE\TENOFOVIR DISOPROXIL FUMARATE
     Indication: HIV INFECTION
     Dosage: 1 DOSAGE FORM, QD
     Route: 048
     Dates: start: 201101, end: 201212
  7. NORVIR [Concomitant]
     Active Substance: RITONAVIR
  8. BICILLIN L-A [Concomitant]
     Active Substance: PENICILLIN G BENZATHINE
  9. FLU [Concomitant]
     Active Substance: INFLUENZA VIRUS VACCINE
  10. MENINGOCOCCAL POLYSACCHARIDE VACCINE A NOS [Concomitant]
     Active Substance: MENINGOCOCCAL POLYSACCHARIDE VACCINE A\NEISSERIA MENINGITIDIS GROUP A CAPSULAR POLYSACCHARIDE ANTIGEN
  11. ODEFSEY [Concomitant]
     Active Substance: EMTRICITABINE\RILPIVIRINE HYDROCHLORIDE\TENOFOVIR ALAFENAMIDE FUMARATE
  12. AMLODIPINE [Concomitant]
     Active Substance: AMLODIPINE BESYLATE

REACTIONS (7)
  - Anhedonia [Unknown]
  - Chronic kidney disease [Not Recovered/Not Resolved]
  - Emotional distress [Unknown]
  - Pain [Unknown]
  - Anxiety [Unknown]
  - Renal failure [Unknown]
  - Economic problem [Unknown]

NARRATIVE: CASE EVENT DATE: 201901
